FAERS Safety Report 4340806-0 (Version None)
Quarter: 2004Q2

REPORT INFORMATION
  Report Type: 
  Country: None (occurrence: None)
  Receive Date: 20040413
  Receipt Date: 20040401
  Transmission Date: 20050107
  Serious: Yes (Hospitalization, Other)
  Sender: FDA-Public Use
  Company Number: 2004022541

PATIENT
  Sex: Male

DRUGS (1)
  1. DILANTIN KAPSEAL [Suspect]
     Indication: ILL-DEFINED DISORDER
     Dosage: 400 MG (BID), ORAL
     Route: 048

REACTIONS (2)
  - ANTICONVULSANT DRUG LEVEL DECREASED [None]
  - URINARY TRACT INFECTION [None]
